FAERS Safety Report 10380637 (Version 1)
Quarter: 2014Q1

REPORT INFORMATION
  Report Type: Spontaneous
  Country: US (occurrence: None)
  Receive Date: 20140306
  Receipt Date: 20140306
  Transmission Date: 20141002
  Serious: Yes (Other)
  Sender: FDA-Public Use
  Company Number: 163-21880-13061076

PATIENT
  Age: 83 Year
  Sex: Male
  Weight: 59 kg

DRUGS (4)
  1. REVLIMID (LENALIDOMIDE) (10 MILLIGRAM, CAPSULES) [Suspect]
     Indication: PLASMA CELL MYELOMA
     Dates: start: 200909
  2. CYMBALTA [Concomitant]
  3. VICODIN (VICODIN) [Concomitant]
  4. GABAPENTIN (GABAPENTIN) [Concomitant]

REACTIONS (5)
  - Dyspnoea [None]
  - Fatigue [None]
  - Colitis [None]
  - Pruritus [None]
  - Diarrhoea [None]
